FAERS Safety Report 16691272 (Version 2)
Quarter: 2019Q3

REPORT INFORMATION
  Report Type: Spontaneous
  Country: US (occurrence: US)
  Receive Date: 20190812
  Receipt Date: 20190825
  Transmission Date: 20191004
  Serious: Yes (Hospitalization, Other)
  Sender: FDA-Public Use
  Company Number: US-AMGEN-USASP2019125258

PATIENT
  Sex: Male
  Weight: 136.05 kg

DRUGS (2)
  1. SENSIPAR [Suspect]
     Active Substance: CINACALCET HYDROCHLORIDE
     Indication: HYPERPARATHYROIDISM SECONDARY
     Dosage: 30 MILLIGRAM
     Route: 065
  2. SENSIPAR [Suspect]
     Active Substance: CINACALCET HYDROCHLORIDE
     Dosage: 90 MILLIGRAM, QD
     Route: 065

REACTIONS (6)
  - Blood parathyroid hormone abnormal [Unknown]
  - Cardiac disorder [Unknown]
  - Rectal haemorrhage [Unknown]
  - Seizure [Unknown]
  - Gastrointestinal haemorrhage [Unknown]
  - Gangrene [Unknown]

NARRATIVE: CASE EVENT DATE: 2019
